FAERS Safety Report 18329510 (Version 1)
Quarter: 2020Q3

REPORT INFORMATION
  Report Type: Spontaneous
  Country: US (occurrence: US)
  Receive Date: 20200929
  Receipt Date: 20200929
  Transmission Date: 20201103
  Serious: Yes (Disabling)
  Sender: FDA-Public Use
  Company Number: None

PATIENT
  Age: 67 Year
  Sex: Female
  Weight: 72.58 kg

DRUGS (2)
  1. NATURE?THROID [Suspect]
     Active Substance: THYROID, PORCINE
     Indication: HYPOTHYROIDISM
     Route: 048
     Dates: start: 20180703, end: 20200904
  2. MULTI?VITAMIN [Concomitant]
     Active Substance: .ALPHA.-TOCOPHEROL ACETATE, DL-\ASCORBIC ACID\CYANOCOBALAMIN\FLUORIDE ION\FOLIC ACID\NIACIN\PYRIDOXINE\RIBOFLAVIN\THIAMINE\VITAMIN A\VITAMIN D

REACTIONS (7)
  - Weight increased [None]
  - Disturbance in attention [None]
  - Fatigue [None]
  - Drug ineffective [None]
  - Madarosis [None]
  - Recalled product [None]
  - Acne [None]

NARRATIVE: CASE EVENT DATE: 20200401
